FAERS Safety Report 6100165-X (Version None)
Quarter: 2009Q1

REPORT INFORMATION
  Report Type: 
  Country: None (occurrence: None)
  Receive Date: 20090303
  Receipt Date: 20090225
  Transmission Date: 20090719
  Serious: No
  Sender: FDA-Public Use
  Company Number: US-JNJFOC-20090206722

PATIENT
  Sex: Male
  Weight: 86.18 kg

DRUGS (9)
  1. DURAGESIC-100 [Suspect]
     Route: 062
  2. DURAGESIC-100 [Suspect]
     Indication: BACK PAIN
     Route: 062
  3. ATENOLOL [Concomitant]
     Indication: HYPERTENSION
     Route: 048
  4. LISINOPRIL [Concomitant]
     Indication: HYPERTENSION
     Route: 048
  5. FELODIPINE [Concomitant]
     Indication: HYPERTENSION
     Route: 048
  6. CETRIZINE [Concomitant]
     Indication: MULTIPLE ALLERGIES
     Route: 048
  7. NEXIUM [Concomitant]
     Indication: GASTROOESOPHAGEAL REFLUX DISEASE
     Route: 048
  8. LAVID [Concomitant]
     Indication: GASTROINTESTINAL DISORDER
     Dosage: FOR UPPER BOWEL
     Route: 048
  9. ASPIRIN [Concomitant]
     Indication: COAGULOPATHY
     Route: 048

REACTIONS (2)
  - RASH [None]
  - WRONG TECHNIQUE IN DRUG USAGE PROCESS [None]
